FAERS Safety Report 11427961 (Version 1)
Quarter: 2015Q3

REPORT INFORMATION
  Report Type: Spontaneous
  Country: TR (occurrence: None)
  Receive Date: 20150826
  Receipt Date: 20150826
  Transmission Date: 20151125
  Serious: Yes (Hospitalization, Other)
  Sender: FDA-Public Use
  Company Number: 2015HINLIT0696

PATIENT
  Age: 20 Year
  Sex: Female

DRUGS (3)
  1. SERTRALINE [Concomitant]
     Active Substance: SERTRALINE HYDROCHLORIDE
  2. FLUOXETINE (FLUOXETINE) [Suspect]
     Active Substance: FLUOXETINE HYDROCHLORIDE
     Indication: PRODUCT USED FOR UNKNOWN INDICATION
  3. ARIPIPRAZOLE (ARIPIPRAZOLE) UNKNOWN [Suspect]
     Active Substance: ARIPIPRAZOLE
     Indication: DEPRESSIVE SYMPTOM

REACTIONS (11)
  - Akathisia [None]
  - Tachycardia [None]
  - Muscle rigidity [None]
  - Hyperhidrosis [None]
  - Tremor [None]
  - Ataxia [None]
  - Serotonin syndrome [None]
  - Agitation [None]
  - Pain [None]
  - Myalgia [None]
  - Drug interaction [None]
